FAERS Safety Report 25354723 (Version 2)
Quarter: 2025Q2

REPORT INFORMATION
  Report Type: Report from Study
  Country: DE (occurrence: DE)
  Receive Date: 20250524
  Receipt Date: 20250602
  Transmission Date: 20250717
  Serious: Yes (Hospitalization)
  Sender: ROCHE
  Company Number: DE-ML39632-2559215-0

PATIENT
  Age: 51 Year
  Sex: Male

DRUGS (14)
  1. OCREVUS [Suspect]
     Active Substance: OCRELIZUMAB
     Indication: Relapsing multiple sclerosis
     Route: 042
     Dates: start: 20190514, end: 20190531
  2. OCREVUS [Suspect]
     Active Substance: OCRELIZUMAB
     Route: 042
     Dates: start: 20191126
  3. ACETAMINOPHEN [Concomitant]
     Active Substance: ACETAMINOPHEN
     Indication: Premedication
     Route: 048
     Dates: start: 20191126
  4. ACETAMINOPHEN [Concomitant]
     Active Substance: ACETAMINOPHEN
     Route: 042
     Dates: start: 20190514, end: 20190514
  5. ACETAMINOPHEN [Concomitant]
     Active Substance: ACETAMINOPHEN
     Route: 042
     Dates: start: 20190531, end: 20190531
  6. METHYLPREDNISOLONE [Concomitant]
     Active Substance: METHYLPREDNISOLONE
     Route: 042
     Dates: start: 20190531, end: 20190531
  7. METHYLPREDNISOLONE [Concomitant]
     Active Substance: METHYLPREDNISOLONE
     Route: 042
     Dates: start: 20190514, end: 20190514
  8. METHYLPREDNISOLONE [Concomitant]
     Active Substance: METHYLPREDNISOLONE
     Route: 042
     Dates: start: 20191126
  9. TADALAFIL [Concomitant]
     Active Substance: TADALAFIL
     Indication: Sexual dysfunction
     Route: 048
  10. DOXYLAMINE\FOLIC ACID\PYRIDOXINE [Concomitant]
     Active Substance: DOXYLAMINE\FOLIC ACID\PYRIDOXINE
     Route: 042
     Dates: start: 20190514, end: 20190514
  11. DOXYLAMINE\FOLIC ACID\PYRIDOXINE [Concomitant]
     Active Substance: DOXYLAMINE\FOLIC ACID\PYRIDOXINE
     Route: 042
     Dates: start: 20190531, end: 20190531
  12. DOXYLAMINE\FOLIC ACID\PYRIDOXINE [Concomitant]
     Active Substance: DOXYLAMINE\FOLIC ACID\PYRIDOXINE
     Route: 042
     Dates: start: 20191126
  13. Pfizer-BioNTech COVID-19-Impfstoff [Concomitant]
     Indication: COVID-19 prophylaxis
     Route: 030
     Dates: start: 202108, end: 202108
  14. Pfizer-BioNTech COVID-19-Impfstoff [Concomitant]
     Route: 030
     Dates: start: 202109, end: 202109

REACTIONS (2)
  - Abnormal loss of weight [Recovered/Resolved]
  - General physical health deterioration [Recovered/Resolved]

NARRATIVE: CASE EVENT DATE: 20241226
